FAERS Safety Report 7433759-X (Version None)
Quarter: 2011Q2

REPORT INFORMATION
  Report Type: 
  Country: None (occurrence: None)
  Receive Date: 20110425
  Receipt Date: 20110418
  Transmission Date: 20111010
  Serious: Yes (Other)
  Sender: FDA-Public Use
  Company Number: US-ASTRAZENECA-2007UW05241

PATIENT
  Age: 18487 Day
  Sex: Male
  Weight: 117.9 kg

DRUGS (9)
  1. ZYPREXA / SYMBYAX [Concomitant]
     Dates: start: 20020601, end: 20030101
  2. DEPAKOTE [Concomitant]
     Dates: start: 20040101, end: 20070101
  3. SEROQUEL [Suspect]
     Indication: BIPOLAR DISORDER
     Route: 048
     Dates: start: 20051201, end: 20060502
  4. ABILIFY [Concomitant]
     Dates: start: 20060301, end: 20070101
  5. RISPERDAL [Concomitant]
     Dates: start: 20030601, end: 20040101
  6. SEROQUEL [Suspect]
     Indication: DEPRESSION
     Route: 048
     Dates: start: 20051201, end: 20060502
  7. NAVANE [Concomitant]
  8. GEODON [Concomitant]
     Dosage: 2/40 MG
  9. EFFEXOR [Concomitant]
     Dates: start: 20040101

REACTIONS (4)
  - DIABETIC KETOACIDOSIS [None]
  - RENAL CANCER [None]
  - CEREBROVASCULAR ACCIDENT [None]
  - TYPE 2 DIABETES MELLITUS [None]
